FAERS Safety Report 24533181 (Version 2)
Quarter: 2025Q2

REPORT INFORMATION
  Report Type: Report from Study
  Country: DE (occurrence: DE)
  Receive Date: 20241022
  Receipt Date: 20250512
  Transmission Date: 20250716
  Serious: Yes (Death)
  Sender: PFIZER
  Company Number: DE-PFIZER INC-PV202400136160

PATIENT
  Age: 72 Year
  Sex: Female
  Weight: 71 kg

DRUGS (3)
  1. TUCATINIB [Suspect]
     Active Substance: TUCATINIB
     Indication: Breast cancer
     Dosage: 300 MG, DAILY
     Route: 048
     Dates: start: 20220628, end: 20220726
  2. ALIZAPRIDE [Concomitant]
     Active Substance: ALIZAPRIDE
     Indication: Prophylaxis
     Route: 042
     Dates: start: 20220628, end: 20220719
  3. EPOETIN ZETA [Concomitant]
     Active Substance: ERYTHROPOIETIN
     Indication: Prophylaxis
     Dosage: 40000 IU, WEEKLY
     Route: 058
     Dates: start: 20220726, end: 20220726

REACTIONS (2)
  - Breast cancer [Fatal]
  - Malignant neoplasm progression [Fatal]

NARRATIVE: CASE EVENT DATE: 20220726
